FAERS Safety Report 5567631-7 (Version None)
Quarter: 2007Q4

REPORT INFORMATION
  Report Type: 
  Country: None (occurrence: None)
  Receive Date: 20071219
  Receipt Date: 20071207
  Transmission Date: 20080405
  Serious: Yes (Other)
  Sender: FDA-Public Use
  Company Number: US-PFIZER INC-2007104402

PATIENT
  Sex: Female
  Weight: 69.545 kg

DRUGS (7)
  1. DILANTIN [Suspect]
     Indication: CONVULSION
     Route: 048
  2. DILANTIN [Suspect]
     Dosage: TEXT:30 MG DAILY EVERDAY TDD:30 MG
     Route: 048
  3. BUMETANIDE [Concomitant]
  4. ISOSORBIDE DINITRATE [Concomitant]
  5. SYNTHROID [Concomitant]
  6. ALL OTHER THERAPEUTIC PRODUCTS [Concomitant]
  7. SPIRONOLACTONE [Concomitant]

REACTIONS (3)
  - COLITIS ULCERATIVE [None]
  - HYPERSENSITIVITY [None]
  - URINE ODOUR ABNORMAL [None]
